FAERS Safety Report 11492501 (Version 1)
Quarter: 2015Q3

REPORT INFORMATION
  Report Type: Spontaneous
  Country: US (occurrence: None)
  Receive Date: 20150910
  Receipt Date: 20150910
  Transmission Date: 20151125
  Serious: Yes (Hospitalization)
  Sender: FDA-Public Use
  Company Number: None

PATIENT
  Sex: Male

DRUGS (1)
  1. CAPECITABINE 500MG TEVA PHARMACEUTICALS [Suspect]
     Active Substance: CAPECITABINE
     Indication: COLON CANCER
     Dosage: 3 TABS BID X 14 DAYS THEN 7 DAYS OFF
     Route: 048
     Dates: start: 20150731, end: 201508

REACTIONS (10)
  - Decreased appetite [None]
  - Stomatitis [None]
  - Pulmonary embolism [None]
  - Palmar-plantar erythrodysaesthesia syndrome [None]
  - Fatigue [None]
  - Diarrhoea [None]
  - Dehydration [None]
  - Pancreatitis [None]
  - Nausea [None]
  - Deep vein thrombosis [None]
